FAERS Safety Report 5252235-6 (Version None)
Quarter: 2007Q1

REPORT INFORMATION
  Report Type: 
  Country: None (occurrence: None)
  Receive Date: 20070227
  Receipt Date: 20070227
  Transmission Date: 20070707
  Serious: No
  Sender: FDA-Public Use
  Company Number: None

PATIENT
  Age: 50 Year
  Sex: Female
  Weight: 65.7716 kg

DRUGS (2)
  1. TIZANIDINE HCL [Suspect]
     Indication: MUSCLE SPASMS
     Dosage: 1 TABLET   2 TO 3 TIMES DAIL   PO
     Route: 048
     Dates: start: 20070123, end: 20070226
  2. TIZANIDINE HCL [Suspect]
     Indication: OSTEOARTHRITIS
     Dosage: 1 TABLET   2 TO 3 TIMES DAIL   PO
     Route: 048
     Dates: start: 20070123, end: 20070226

REACTIONS (5)
  - DRUG INEFFECTIVE [None]
  - DRY MOUTH [None]
  - PHARMACEUTICAL PRODUCT COMPLAINT [None]
  - SOMNOLENCE [None]
  - THERAPEUTIC RESPONSE DECREASED [None]
